FAERS Safety Report 23789694 (Version 1)
Quarter: 2024Q2

REPORT INFORMATION
  Report Type: Spontaneous
  Country: US (occurrence: None)
  Receive Date: 20240426
  Receipt Date: 20240426
  Transmission Date: 20240715
  Serious: No
  Sender: FDA-Public Use
  Company Number: None

PATIENT
  Age: 66 Year
  Sex: Male
  Weight: 107 kg

DRUGS (1)
  1. CARBOPLATIN [Suspect]
     Active Substance: CARBOPLATIN
     Indication: Neuroendocrine tumour
     Dosage: 750 MG UD IV ?
     Route: 042
     Dates: start: 20220711, end: 20220822

REACTIONS (3)
  - Anaemia [None]
  - Pancytopenia [None]
  - Myelosuppression [None]

NARRATIVE: CASE EVENT DATE: 20220907
